FAERS Safety Report 8598495 (Version 4)
Quarter: 2014Q1

REPORT INFORMATION
  Report Type: Spontaneous
  Country: US (occurrence: US)
  Receive Date: 20120605
  Receipt Date: 20140114
  Transmission Date: 20141002
  Serious: Yes (Hospitalization, Disabling, Other)
  Sender: FDA-Public Use
  Company Number: US-ASTRAZENECA-2012SE35279

PATIENT
  Age: 40 Year
  Sex: Male
  Weight: 81.2 kg

DRUGS (13)
  1. NEXIUM [Suspect]
     Indication: BARRETT^S OESOPHAGUS
     Route: 048
     Dates: start: 1998
  2. NEXIUM [Suspect]
     Indication: GASTROOESOPHAGEAL REFLUX DISEASE
     Route: 048
     Dates: start: 1998
  3. NEXIUM [Suspect]
     Indication: BARRETT^S OESOPHAGUS
     Route: 048
     Dates: start: 2010, end: 2011
  4. NEXIUM [Suspect]
     Indication: GASTROOESOPHAGEAL REFLUX DISEASE
     Route: 048
     Dates: start: 2010, end: 2011
  5. NEXIUM [Suspect]
     Indication: BARRETT^S OESOPHAGUS
     Route: 048
     Dates: start: 20100506
  6. NEXIUM [Suspect]
     Indication: GASTROOESOPHAGEAL REFLUX DISEASE
     Route: 048
     Dates: start: 20100506
  7. OXYCONTIN [Concomitant]
     Dates: start: 20100324
  8. PROMETHAZINE [Concomitant]
     Dates: start: 20100324
  9. CELEBREX [Concomitant]
     Dates: start: 20100323
  10. TRAMADOL HCL [Concomitant]
     Dates: start: 20100323
  11. CARISOPRODOL [Concomitant]
     Dates: start: 20100329
  12. HYDROCODONE APAP [Concomitant]
     Dosage: 5 TO 500 MG
     Dates: start: 20100408
  13. PERCOCET [Concomitant]
     Indication: PAIN
     Dosage: 5/325 MG ONE EVERY HOURS AS NEEDED
     Dates: start: 20110708

REACTIONS (7)
  - Wrist fracture [Unknown]
  - Femur fracture [Unknown]
  - Fall [Unknown]
  - Gallbladder disorder [Unknown]
  - Osteoporosis [Unknown]
  - Bone disorder [Unknown]
  - Calcium deficiency [Unknown]
